FAERS Safety Report 19309168 (Version 1)
Quarter: 2021Q2

REPORT INFORMATION
  Report Type: Spontaneous
  Country: US (occurrence: US)
  Receive Date: 20210526
  Receipt Date: 20210526
  Transmission Date: 20210717
  Serious: No
  Sender: FDA-Public Use
  Company Number: US-ESPERIONTHERAPEUTICS-2021USA00469

PATIENT
  Age: 74 Year
  Sex: Female
  Weight: 78.91 kg

DRUGS (7)
  1. TYLENOL [Concomitant]
     Active Substance: ACETAMINOPHEN
     Indication: MYALGIA
     Dosage: TWO TO THREE TIMES A WEEK
     Route: 065
     Dates: start: 2020
  2. ALLOPURINOL. [Suspect]
     Active Substance: ALLOPURINOL
     Indication: PRODUCT USED FOR UNKNOWN INDICATION
     Dosage: UNK
     Route: 065
     Dates: start: 2020, end: 2020
  3. TYLENOL [Concomitant]
     Active Substance: ACETAMINOPHEN
     Dosage: UNK UNK, QW
     Route: 065
     Dates: start: 202010
  4. NEXLETOL [Suspect]
     Active Substance: BEMPEDOIC ACID
     Indication: PRODUCT USED FOR UNKNOWN INDICATION
     Dosage: 180 MILLIGRAM
     Route: 065
     Dates: start: 20200608
  5. VASCEPA [Suspect]
     Active Substance: ICOSAPENT ETHYL
     Dosage: 2 GRAM, BID
     Route: 048
     Dates: start: 202004, end: 202009
  6. VASCEPA [Suspect]
     Active Substance: ICOSAPENT ETHYL
     Indication: BLOOD TRIGLYCERIDES ABNORMAL
     Dosage: 4 GRAM, QD
     Route: 048
     Dates: start: 20200325, end: 202004
  7. VASCEPA [Suspect]
     Active Substance: ICOSAPENT ETHYL
     Dosage: 2 GRAM, QD
     Route: 048
     Dates: start: 202009

REACTIONS (9)
  - Muscle spasms [Recovered/Resolved]
  - Flatulence [Unknown]
  - Fall [Unknown]
  - Blood test abnormal [Unknown]
  - Diarrhoea [Recovered/Resolved]
  - Nausea [Recovered/Resolved]
  - Pain in extremity [Unknown]
  - Oral mucosal eruption [Recovering/Resolving]
  - Neoplasm skin [Unknown]

NARRATIVE: CASE EVENT DATE: 2020
